FAERS Safety Report 11238198 (Version 1)
Quarter: 2015Q3

REPORT INFORMATION
  Report Type: Spontaneous
  Country: CN (occurrence: CN)
  Receive Date: 20150703
  Receipt Date: 20150703
  Transmission Date: 20151125
  Serious: Yes (Other)
  Sender: FDA-Public Use
  Company Number: CN-GLAXOSMITHKLINE-CN2015GSK096013

PATIENT
  Age: 26 Year
  Sex: Female

DRUGS (2)
  1. CEFUROXIME. [Suspect]
     Active Substance: CEFUROXIME
     Indication: PRODUCT USED FOR UNKNOWN INDICATION
     Dosage: 3 G, BID
     Route: 042
  2. BUDESONIDE. [Suspect]
     Active Substance: BUDESONIDE
     Indication: PRODUCT USED FOR UNKNOWN INDICATION
     Dosage: 1 MG, UNK
     Route: 055

REACTIONS (5)
  - Mucosal ulceration [Recovered/Resolved]
  - Aspergillus infection [Recovered/Resolved]
  - Vocal cord disorder [Recovered/Resolved]
  - Upper respiratory fungal infection [Recovered/Resolved]
  - Inflammation [Recovered/Resolved]
